FAERS Safety Report 20503369 (Version 1)
Quarter: 2022Q1

REPORT INFORMATION
  Report Type: Spontaneous
  Country: JP (occurrence: JP)
  Receive Date: 20220222
  Receipt Date: 20220222
  Transmission Date: 20220424
  Serious: Yes (Hospitalization)
  Sender: FDA-Public Use
  Company Number: JP-ELI_LILLY_AND_COMPANY-JP202202008749

PATIENT
  Sex: Female

DRUGS (1)
  1. ADCIRCA [Suspect]
     Active Substance: TADALAFIL
     Indication: Pulmonary arterial hypertension
     Dosage: UNK, UNKNOWN
     Route: 048
     Dates: start: 2021

REACTIONS (3)
  - Cardiogenic shock [Unknown]
  - Dehydration [Unknown]
  - Loss of personal independence in daily activities [Unknown]

NARRATIVE: CASE EVENT DATE: 20220208
